FAERS Safety Report 7000685-X (Version None)
Quarter: 2010Q3

REPORT INFORMATION
  Report Type: 
  Country: None (occurrence: None)
  Receive Date: 20100920
  Receipt Date: 20100108
  Transmission Date: 20110219
  Serious: No
  Sender: FDA-Public Use
  Company Number: US-ASTRAZENECA-2010SE00961

PATIENT
  Age: 66 Year
  Sex: Female

DRUGS (6)
  1. SEROQUEL [Suspect]
     Indication: BIPOLAR DISORDER
     Route: 048
     Dates: start: 20000901
  2. SEROQUEL [Suspect]
     Route: 048
     Dates: start: 20050401
  3. SEROQUEL [Suspect]
     Route: 048
  4. SEROQUEL [Suspect]
     Route: 048
     Dates: start: 20080401
  5. INSULIN [Concomitant]
  6. CYMBALTA [Concomitant]

REACTIONS (11)
  - APPETITE DISORDER [None]
  - ASTHENIA [None]
  - DEHYDRATION [None]
  - DIABETES MELLITUS [None]
  - DISORIENTATION [None]
  - HYPERGLYCAEMIA [None]
  - IMPAIRED WORK ABILITY [None]
  - INSOMNIA [None]
  - LOSS OF EMPLOYMENT [None]
  - SEDATION [None]
  - WEIGHT INCREASED [None]
